FAERS Safety Report 17631801 (Version 1)
Quarter: 2020Q2

REPORT INFORMATION
  Report Type: Spontaneous
  Country: US (occurrence: US)
  Receive Date: 20200406
  Receipt Date: 20200406
  Transmission Date: 20200713
  Serious: No
  Sender: FDA-Public Use
  Company Number: None

PATIENT
  Sex: Female
  Weight: 83.46 kg

DRUGS (1)
  1. INVEGA TRINZA [Suspect]
     Active Substance: PALIPERIDONE PALMITATE
     Indication: BIPOLAR DISORDER
     Dosage: EVERY 3 MONTHS
     Route: 030
     Dates: start: 20180405, end: 20200406

REACTIONS (3)
  - Vomiting [None]
  - Mental status changes [None]
  - Hyperhidrosis [None]

NARRATIVE: CASE EVENT DATE: 20200213
